FAERS Safety Report 20295843 (Version 1)
Quarter: 2022Q1

REPORT INFORMATION
  Report Type: Spontaneous
  Country: FR (occurrence: FR)
  Receive Date: 20220104
  Receipt Date: 20220104
  Transmission Date: 20220423
  Serious: Yes (Disabling)
  Sender: FDA-Public Use
  Company Number: FR-AFSSAPS-GR20214959

PATIENT
  Age: 3 Day
  Sex: Female

DRUGS (1)
  1. GEMCITABINE [Suspect]
     Active Substance: GEMCITABINE
     Indication: Maternal condition affecting foetus
     Dosage: UNK NP ()
     Route: 040
     Dates: start: 20061024, end: 20061024

REACTIONS (1)
  - Deafness [Not Recovered/Not Resolved]

NARRATIVE: CASE EVENT DATE: 20061025
